FAERS Safety Report 16048381 (Version 4)
Quarter: 2019Q2

REPORT INFORMATION
  Report Type: Spontaneous
  Country: US (occurrence: US)
  Receive Date: 20190307
  Receipt Date: 20190521
  Transmission Date: 20190711
  Serious: Yes (Death, Other)
  Sender: FDA-Public Use
  Company Number: US-ASTRAZENECA-2018SE99612

PATIENT
  Age: 25754 Day
  Sex: Female

DRUGS (21)
  1. NEXIUM [Suspect]
     Active Substance: ESOMEPRAZOLE MAGNESIUM
     Route: 048
     Dates: start: 20070101
  2. MORPHINE [Concomitant]
     Active Substance: MORPHINE
  3. RANITIDINE. [Concomitant]
     Active Substance: RANITIDINE
  4. TRAMADOL. [Concomitant]
     Active Substance: TRAMADOL
  5. NOVOLOG [Concomitant]
     Active Substance: INSULIN ASPART
  6. SIMVASTATIN. [Concomitant]
     Active Substance: SIMVASTATIN
  7. GABAPENTIN. [Concomitant]
     Active Substance: GABAPENTIN
  8. METOPROLOL. [Concomitant]
     Active Substance: METOPROLOL
  9. PRILOSEC [Suspect]
     Active Substance: OMEPRAZOLE MAGNESIUM
     Route: 048
     Dates: start: 20070101
  10. LACTULOSE. [Concomitant]
     Active Substance: LACTULOSE
  11. FUROSEMIDE. [Concomitant]
     Active Substance: FUROSEMIDE
  12. CALCIUM ACETATE. [Concomitant]
     Active Substance: CALCIUM ACETATE
  13. GLUCAGON. [Concomitant]
     Active Substance: GLUCAGON
  14. CETRIZINE [Concomitant]
     Active Substance: CETIRIZINE HYDROCHLORIDE
  15. CINACALCET. [Concomitant]
     Active Substance: CINACALCET
  16. OXYCODONE [Concomitant]
     Active Substance: OXYCODONE
  17. VITAMIN D [Concomitant]
     Active Substance: VITAMIN D NOS
  18. CYMBALTA [Concomitant]
     Active Substance: DULOXETINE HYDROCHLORIDE
  19. PRILOSEC OTC [Suspect]
     Active Substance: OMEPRAZOLE MAGNESIUM
     Route: 048
     Dates: start: 20070101
  20. METHOCARBAMOL. [Concomitant]
     Active Substance: METHOCARBAMOL
  21. ASPIRIN. [Concomitant]
     Active Substance: ASPIRIN

REACTIONS (6)
  - Death [Fatal]
  - Acute kidney injury [Unknown]
  - Chronic kidney disease [Unknown]
  - Renal injury [Unknown]
  - Nephrogenic anaemia [Unknown]
  - End stage renal disease [Unknown]

NARRATIVE: CASE EVENT DATE: 20160914
